FAERS Safety Report 7792803-0 (Version None)
Quarter: 2011Q4

REPORT INFORMATION
  Report Type: 
  Country: None (occurrence: None)
  Receive Date: 20111003
  Receipt Date: 20110928
  Transmission Date: 20120403
  Serious: Yes (Hospitalization)
  Sender: FDA-Public Use
  Company Number: US-GLAXOSMITHKLINE-A0882817A

PATIENT
  Age: 54 Year
  Sex: Male
  Weight: 84.5 kg

DRUGS (9)
  1. JANUVIA [Concomitant]
  2. VYTORIN [Concomitant]
  3. ALLOPURINOL [Concomitant]
  4. LISINOPRIL [Concomitant]
  5. COLCHICINE [Concomitant]
  6. METFORMIN HCL [Concomitant]
  7. INDOMETHACIN [Concomitant]
  8. FAMVIR [Concomitant]
  9. AVANDIA [Suspect]
     Indication: TYPE 2 DIABETES MELLITUS
     Dosage: 4MG TWICE PER DAY
     Route: 048

REACTIONS (3)
  - BRAIN STEM STROKE [None]
  - CONDITION AGGRAVATED [None]
  - HYPOAESTHESIA [None]
